FAERS Safety Report 18717609 (Version 14)
Quarter: 2021Q2

REPORT INFORMATION
  Report Type: Spontaneous
  Country: CA (occurrence: CA)
  Receive Date: 20210108
  Receipt Date: 20210526
  Transmission Date: 20210717
  Serious: Yes (Hospitalization, Other)
  Sender: FDA-Public Use
  Company Number: CA-PFIZER INC-2020510605

PATIENT
  Age: 52 Year
  Sex: Male
  Weight: 80 kg

DRUGS (13)
  1. ZIRABEV [Suspect]
     Active Substance: BEVACIZUMAB-BVZR
     Dosage: 5 MG/KG (401 MG) EVERY (Q) 14 DAYS
     Route: 042
     Dates: start: 20210128
  2. METOPROLOL. [Concomitant]
     Active Substance: METOPROLOL
     Dosage: UNK
  3. BLEOMYCIN [Concomitant]
     Active Substance: BLEOMYCIN SULFATE
     Dosage: UNK
  4. ZIRABEV [Suspect]
     Active Substance: BEVACIZUMAB-BVZR
     Dosage: 5 MG/KG EVERY (Q) 14 DAYS
     Route: 042
     Dates: start: 20201119, end: 20210311
  5. ZIRABEV [Suspect]
     Active Substance: BEVACIZUMAB-BVZR
     Dosage: 390MG IV EVERY (Q) 2 WEEKS
     Route: 042
     Dates: start: 20210211
  6. MAXERAN [Concomitant]
     Active Substance: METOCLOPRAMIDE HYDROCHLORIDE
     Dosage: UNK
  7. ZIRABEV [Suspect]
     Active Substance: BEVACIZUMAB-BVZR
     Dosage: 5 MG/KG EVERY (Q) 14 DAYS
     Route: 042
     Dates: start: 20201217, end: 20210104
  8. ZIRABEV [Suspect]
     Active Substance: BEVACIZUMAB-BVZR
     Dosage: 370MG IV EVERY (Q) 2 WEEKS
     Route: 042
     Dates: start: 20210311
  9. ATORVASTATIN [Concomitant]
     Active Substance: ATORVASTATIN
     Dosage: UNK
  10. RAMIPRIL. [Concomitant]
     Active Substance: RAMIPRIL
     Dosage: UNK
  11. PANTOPRAZOLE [Concomitant]
     Active Substance: PANTOPRAZOLE
     Dosage: UNK
  12. XARELTO [Concomitant]
     Active Substance: RIVAROXABAN
     Dosage: UNK
  13. ZIRABEV [Suspect]
     Active Substance: BEVACIZUMAB-BVZR
     Dosage: 390MG IV EVERY (Q) 2 WEEKS
     Route: 042
     Dates: start: 20210225

REACTIONS (13)
  - Vomiting [Unknown]
  - Off label use [Unknown]
  - Retching [Unknown]
  - Vocal cord paralysis [Unknown]
  - Weight decreased [Not Recovered/Not Resolved]
  - Vocal cord inflammation [Unknown]
  - Intentional product use issue [Unknown]
  - Condition aggravated [Unknown]
  - Vascular access site occlusion [Not Recovered/Not Resolved]
  - Cough [Unknown]
  - Poor venous access [Recovered/Resolved]
  - Off label use [Unknown]
  - Arthralgia [Unknown]

NARRATIVE: CASE EVENT DATE: 20201119
